FAERS Safety Report 4463549-1 (Version None)
Quarter: 2004Q3

REPORT INFORMATION
  Report Type: 
  Country: None (occurrence: None)
  Receive Date: 20040928
  Receipt Date: 20040908
  Transmission Date: 20050211
  Serious: Yes (Hospitalization)
  Sender: FDA-Public Use
  Company Number: B0345438A

PATIENT
  Sex: Female

DRUGS (2)
  1. VENTOLIN MULTI DOSE POWDER INHALER (ALBUTEROL SULFATE) [Suspect]
     Indication: ASTHMA
  2. VENTOLIN [Suspect]
     Indication: ASTHMA
     Dosage: INHALED
     Dates: start: 20030101

REACTIONS (5)
  - ASTHMA [None]
  - CONDITION AGGRAVATED [None]
  - HYPERSENSITIVITY [None]
  - RASH [None]
  - REACTION TO DRUG PRESERVATIVES [None]
